FAERS Safety Report 22120709 (Version 1)
Quarter: 2023Q1

REPORT INFORMATION
  Report Type: Spontaneous
  Country: US (occurrence: US)
  Receive Date: 20230321
  Receipt Date: 20230321
  Transmission Date: 20230417
  Serious: Yes (Other)
  Sender: FDA-Public Use
  Company Number: US-Bion-011355

PATIENT
  Age: 50 Year
  Sex: Female

DRUGS (2)
  1. BEXAROTENE [Suspect]
     Active Substance: BEXAROTENE
     Indication: Cutaneous T-cell lymphoma stage I
  2. IMIQUIMOD [Concomitant]
     Active Substance: IMIQUIMOD
     Indication: Cutaneous T-cell lymphoma stage I

REACTIONS (2)
  - Leukopenia [Unknown]
  - Therapy non-responder [Not Recovered/Not Resolved]
